FAERS Safety Report 6124843-1 (Version None)
Quarter: 2009Q1

REPORT INFORMATION
  Report Type: 
  Country: None (occurrence: None)
  Receive Date: 20090319
  Receipt Date: 20090305
  Transmission Date: 20090719
  Serious: Yes (Death)
  Sender: FDA-Public Use
  Company Number: FR-PFIZER INC-2009180219

PATIENT

DRUGS (6)
  1. AROMASINE [Suspect]
     Indication: BREAST CANCER
     Route: 048
     Dates: start: 20090115, end: 20090125
  2. METFORMIN [Concomitant]
  3. DILTIAZEM HYDROCHLORIDE [Concomitant]
  4. TAHOR [Concomitant]
  5. STRONTIUM RANELATE [Concomitant]
  6. FIXICAL [Concomitant]

REACTIONS (6)
  - ALANINE AMINOTRANSFERASE INCREASED [None]
  - ASPARTATE AMINOTRANSFERASE INCREASED [None]
  - HAEMOLYTIC URAEMIC SYNDROME [None]
  - LACTIC ACIDOSIS [None]
  - PLATELET COUNT DECREASED [None]
  - RENAL FAILURE ACUTE [None]
